FAERS Safety Report 21817577 (Version 1)
Quarter: 2023Q1

REPORT INFORMATION
  Report Type: Spontaneous
  Country: NO (occurrence: NO)
  Receive Date: 20230104
  Receipt Date: 20230104
  Transmission Date: 20230418
  Serious: Yes (Disabling, Other)
  Sender: FDA-Public Use
  Company Number: NO-002147023-NVSC2022NO012564

PATIENT
  Age: 71 Year
  Sex: Male

DRUGS (18)
  1. ATORVASTATIN [Suspect]
     Active Substance: ATORVASTATIN
     Indication: Product used for unknown indication
     Dosage: 80 MG
     Route: 065
     Dates: start: 2016, end: 201605
  2. ATORVASTATIN [Suspect]
     Active Substance: ATORVASTATIN
     Dosage: 40 MG
     Route: 065
     Dates: start: 20150831
  3. ATORVASTATIN [Suspect]
     Active Substance: ATORVASTATIN
     Dosage: 80 UNK, QD
     Route: 065
     Dates: start: 20151005, end: 20220413
  4. ATORVASTATIN [Suspect]
     Active Substance: ATORVASTATIN
     Dosage: 10 MILLIGRAM, QD
     Route: 065
  5. SIMVASTATIN [Suspect]
     Active Substance: SIMVASTATIN
     Indication: Product used for unknown indication
     Dosage: 20 MG
     Route: 065
     Dates: start: 200606
  6. SIMVASTATIN [Suspect]
     Active Substance: SIMVASTATIN
     Dosage: 40 MG
     Route: 065
     Dates: start: 2012
  7. SIMVASTATIN [Suspect]
     Active Substance: SIMVASTATIN
     Dosage: 80 MG
     Route: 065
     Dates: start: 20140312
  8. SIMVASTATIN [Suspect]
     Active Substance: SIMVASTATIN
     Dosage: 80 MILLIGRAM, QD
     Route: 065
     Dates: start: 20150601
  9. SIMVASTATIN [Suspect]
     Active Substance: SIMVASTATIN
     Dosage: 80 MILLIGRAM
     Route: 065
     Dates: start: 20160628, end: 20160727
  10. SIMVASTATIN [Suspect]
     Active Substance: SIMVASTATIN
     Dosage: 80 MILLIGRAM
     Route: 065
     Dates: start: 20140512
  11. SIMVASTATIN [Suspect]
     Active Substance: SIMVASTATIN
     Dosage: 20 MILLIGRAM
     Route: 065
     Dates: start: 200606
  12. SIMVASTATIN [Suspect]
     Active Substance: SIMVASTATIN
     Dosage: 80 MILLIGRAM, QD
     Route: 065
     Dates: start: 20150831
  13. CRESTOR [Concomitant]
     Active Substance: ROSUVASTATIN CALCIUM
     Indication: Product used for unknown indication
     Dosage: 20 MG
     Route: 065
  14. EZETIMIBE [Concomitant]
     Active Substance: EZETIMIBE
     Indication: Product used for unknown indication
     Dosage: 10 MG
     Route: 065
     Dates: start: 201605
  15. LIPITOR [Concomitant]
     Active Substance: ATORVASTATIN CALCIUM
     Indication: Product used for unknown indication
     Dosage: 10 MG
     Route: 065
     Dates: start: 2002
  16. LIPITOR [Concomitant]
     Active Substance: ATORVASTATIN CALCIUM
     Dosage: 20 MG
     Route: 065
     Dates: start: 2007
  17. LIPITOR [Concomitant]
     Active Substance: ATORVASTATIN CALCIUM
     Dosage: 40 MILLIGRAM, QD
     Route: 065
  18. LIPITOR [Concomitant]
     Active Substance: ATORVASTATIN CALCIUM
     Dosage: 10 MILLIGRAM
     Route: 065

REACTIONS (16)
  - Wound [Not Recovered/Not Resolved]
  - Pruritus [Not Recovered/Not Resolved]
  - Balance disorder [Not Recovered/Not Resolved]
  - Hypoaesthesia [Not Recovered/Not Resolved]
  - Polyneuropathy [Unknown]
  - Cardiac valve disease [Unknown]
  - Paralysis [Unknown]
  - Pain in extremity [Not Recovered/Not Resolved]
  - Limb discomfort [Unknown]
  - Low density lipoprotein increased [Unknown]
  - Stasis dermatitis [Unknown]
  - Muscular weakness [Unknown]
  - Myopathy [Unknown]
  - Muscle spasms [Unknown]
  - Blood cholesterol increased [Unknown]
  - Blood creatine phosphokinase increased [Unknown]

NARRATIVE: CASE EVENT DATE: 20160101
